FAERS Safety Report 20650190 (Version 3)
Quarter: 2022Q2

REPORT INFORMATION
  Report Type: Spontaneous
  Country: US (occurrence: US)
  Receive Date: 20220329
  Receipt Date: 20220624
  Transmission Date: 20220720
  Serious: No
  Sender: FDA-Public Use
  Company Number: US-AVEO ONCOLOGY-2022-AVEO-US000003

PATIENT

DRUGS (21)
  1. FOTIVDA [Suspect]
     Active Substance: TIVOZANIB HYDROCHLORIDE
     Indication: Renal cell carcinoma
     Dosage: 1.34 MG, 1 CAP PO DAILY FOR 21 DAYS ON/7 DAYS OFF
     Route: 048
     Dates: start: 20211218, end: 20220103
  2. FOTIVDA [Suspect]
     Active Substance: TIVOZANIB HYDROCHLORIDE
     Dosage: 1.34 MG 1 CAP DAILY FOR 21 DAYS ON/ 7 DAYS OFF
     Route: 048
     Dates: end: 20220330
  3. DEXAMETHASONE [Concomitant]
     Active Substance: DEXAMETHASONE
  4. DUTASTERIDE [Concomitant]
     Active Substance: DUTASTERIDE
  5. FERROUS SULFATE [Concomitant]
     Active Substance: FERROUS SULFATE
  6. FLUDROCORTISONE ACETATE [Concomitant]
     Active Substance: FLUDROCORTISONE ACETATE
  7. HYDRALAZINE [Concomitant]
     Active Substance: HYDRALAZINE HYDROCHLORIDE
  8. INSULIN LISPRO [Concomitant]
     Active Substance: INSULIN LISPRO
  9. KLOR-CON [Concomitant]
     Active Substance: POTASSIUM CHLORIDE
  10. LANTUS [Concomitant]
     Active Substance: INSULIN GLARGINE
  11. LOSARTAN [Concomitant]
     Active Substance: LOSARTAN
  12. METOPROLOL SUCCINATE [Concomitant]
     Active Substance: METOPROLOL SUCCINATE
  13. OMEPRAZOLE [Concomitant]
     Active Substance: OMEPRAZOLE
  14. PRAVASTATIN [Concomitant]
     Active Substance: PRAVASTATIN
  15. ROCALTROL [Concomitant]
     Active Substance: CALCITRIOL
  16. TAMSULOSIN [Concomitant]
     Active Substance: TAMSULOSIN
  17. TORSEMIDE [Concomitant]
     Active Substance: TORSEMIDE
  18. VITAMIN D3 [Concomitant]
     Active Substance: CHOLECALCIFEROL
  19. XARELTO [Concomitant]
     Active Substance: RIVAROXABAN
  20. XGEVA [Concomitant]
     Active Substance: DENOSUMAB
  21. ZAROXOLYN [Concomitant]
     Active Substance: METOLAZONE

REACTIONS (4)
  - Blood pressure increased [Unknown]
  - Dysphonia [Unknown]
  - Hernia repair [Unknown]
  - Therapy interrupted [Unknown]

NARRATIVE: CASE EVENT DATE: 20220330
